FAERS Safety Report 5638907-X (Version None)
Quarter: 2008Q1

REPORT INFORMATION
  Report Type: 
  Country: None (occurrence: None)
  Receive Date: 20080226
  Receipt Date: 20080214
  Transmission Date: 20080703
  Serious: Yes (Other)
  Sender: FDA-Public Use
  Company Number: BG-ROCHE-547675

PATIENT
  Age: 47 Year
  Sex: Male
  Weight: 75 kg

DRUGS (2)
  1. PEGASYS [Suspect]
     Dosage: FORM: SOLUTION INJECTABLE PRE-FILLED SYRINGE
     Route: 058
     Dates: start: 20061117, end: 20071120
  2. COPEGUS [Suspect]
     Route: 048
     Dates: start: 20061117, end: 20071120

REACTIONS (1)
  - CARBOHYDRATE ANTIGEN 19-9 INCREASED [None]
